FAERS Safety Report 22295399 (Version 1)
Quarter: 2023Q2

REPORT INFORMATION
  Report Type: Spontaneous
  Country: US (occurrence: US)
  Receive Date: 20230508
  Receipt Date: 20230508
  Transmission Date: 20230721
  Serious: Yes (Hospitalization)
  Sender: FDA-Public Use
  Company Number: US-STRIDES ARCOLAB LIMITED-2022SP013832

PATIENT
  Age: 80 Year
  Sex: Male

DRUGS (2)
  1. VANCOMYCIN [Suspect]
     Active Substance: VANCOMYCIN
     Indication: Eosinophilic pneumonia acute
     Dosage: UNK
     Route: 065
  2. DAPTOMYCIN [Concomitant]
     Active Substance: DAPTOMYCIN
     Indication: Arthritis bacterial
     Dosage: UNK (FOR 4 WEEKS)
     Route: 042

REACTIONS (1)
  - Drug ineffective for unapproved indication [Unknown]
